FAERS Safety Report 17768624 (Version 2)
Quarter: 2020Q2

REPORT INFORMATION
  Report Type: Spontaneous
  Country: BE (occurrence: BE)
  Receive Date: 20200512
  Receipt Date: 20200518
  Transmission Date: 20200714
  Serious: Yes (Other)
  Sender: FDA-Public Use
  Company Number: BE-ALLERGAN-2018771US

PATIENT
  Sex: Female
  Weight: 81 kg

DRUGS (10)
  1. ASAFLOW [Concomitant]
     Active Substance: ASPIRIN
     Indication: ANTICOAGULANT THERAPY
     Dosage: 1 TABLET PER DAY
     Route: 048
     Dates: start: 201309
  2. FOSFOMYCIN TROMETHAMINE - BP [Suspect]
     Active Substance: FOSFOMYCIN TROMETHAMINE
     Indication: CYSTITIS NONINFECTIVE
     Dosage: 3 G, QHS
     Route: 048
     Dates: start: 20200327, end: 20200327
  3. AMLOR [Concomitant]
     Active Substance: AMLODIPINE BESYLATE
     Indication: BLOOD PRESSURE FLUCTUATION
     Dosage: 5 MG, QD
     Route: 048
     Dates: start: 201712
  4. NOBITEN [Concomitant]
     Active Substance: NEBIVOLOL
     Indication: BLOOD PRESSURE FLUCTUATION
     Dosage: 2 X 1/4 TABLET PER DAY
     Route: 048
     Dates: start: 201707
  5. FLECAINIDE [Concomitant]
     Active Substance: FLECAINIDE
     Dosage: 1/2 TABLET PER DAY
     Route: 048
     Dates: start: 201810
  6. ARIMIDEX [Concomitant]
     Active Substance: ANASTROZOLE
     Indication: BREAST CANCER
     Dosage: 1 TABLET PER DAY
     Route: 048
     Dates: start: 201711
  7. FLECAINIDE [Concomitant]
     Active Substance: FLECAINIDE
     Indication: ARRHYTHMIA
     Dosage: 1 CAPSULE PER DAY
     Route: 048
     Dates: start: 201810
  8. SEDACID [Concomitant]
     Indication: PROPHYLAXIS AGAINST GASTROINTESTINAL ULCER
     Dosage: 1 TABLET PER DAY
     Route: 048
     Dates: start: 201007
  9. METFORMIN [Concomitant]
     Active Substance: METFORMIN HYDROCHLORIDE
     Indication: DIABETES MELLITUS
     Dosage: 2 TABLET PER DAY
     Route: 048
     Dates: start: 201304
  10. ATORSTATINEG [Concomitant]
     Indication: BLOOD CHOLESTEROL
     Dosage: 40 MG, QD
     Route: 048
     Dates: start: 201407

REACTIONS (3)
  - Malaise [Recovered/Resolved]
  - Anxiety [Recovered/Resolved]
  - Arrhythmia [Recovered/Resolved]

NARRATIVE: CASE EVENT DATE: 20200329
